FAERS Safety Report 16594849 (Version 1)
Quarter: 2019Q3

REPORT INFORMATION
  Report Type: Other
  Country: US (occurrence: US)
  Receive Date: 20190718
  Receipt Date: 20190718
  Transmission Date: 20191004
  Serious: No
  Sender: FDA-Public Use
  Company Number: US-SWEDISH ORPHAN BIOVITRUM-2019US0215

PATIENT
  Sex: Female

DRUGS (9)
  1. PREVACID [Concomitant]
     Active Substance: LANSOPRAZOLE
  2. VITAMIN B COMPLEX [Concomitant]
     Active Substance: CYANOCOBALAMIN\DEXPANTHENOL\NIACINAMIDE\PYRIDOXINE HYDROCHLORIDE\RIBOFLAVIN 5^-PHOSPHATE SODIUM\THIAMINE HYDROCHLORIDE\VITAMIN B COMPLEX
  3. BUTARATE [Concomitant]
  4. CALCIUM [Concomitant]
     Active Substance: CALCIUM
  5. KINERET [Suspect]
     Active Substance: ANAKINRA
     Route: 058
     Dates: start: 2018
  6. COLCHICINE. [Concomitant]
     Active Substance: COLCHICINE
  7. BIOTIN [Concomitant]
     Active Substance: BIOTIN
  8. CARAFATE [Concomitant]
     Active Substance: SUCRALFATE
  9. VITAMIN E AND D [Concomitant]

REACTIONS (1)
  - Injection site erythema [Unknown]
